FAERS Safety Report 8422212-2 (Version None)
Quarter: 2012Q2

REPORT INFORMATION
  Report Type: 
  Country: None (occurrence: None)
  Receive Date: 20120608
  Receipt Date: 20120531
  Transmission Date: 20120825
  Serious: Yes (Death, Life-Threatening, Other)
  Sender: FDA-Public Use
  Company Number: JP-SANOFI-AVENTIS-2011SA065458

PATIENT
  Age: 74 Year
  Sex: Male
  Weight: 54 kg

DRUGS (24)
  1. GRANISETRON [Concomitant]
     Indication: PREMEDICATION
     Route: 041
     Dates: start: 20110318, end: 20110512
  2. CEFOPERAZONE SODIUM/SULBACTAM SODIUM [Concomitant]
     Dates: start: 20110513, end: 20110526
  3. GLUCOSE [Concomitant]
     Dates: start: 20110518, end: 20110526
  4. XELODA [Suspect]
     Dosage: DOSE: 200 MG/KG, 130.7 MG/M2, 2ND CYCLE
     Route: 048
     Dates: start: 20110408, end: 20110421
  5. ALMARL [Concomitant]
     Indication: HYPERTENSION
     Route: 048
     Dates: start: 20110329, end: 20110526
  6. NAPROXEN [Concomitant]
     Indication: TUMOUR ASSOCIATED FEVER
     Route: 048
     Dates: start: 20110302, end: 20110526
  7. ASPIRIN [Concomitant]
     Indication: CEREBRAL INFARCTION
     Route: 048
     Dates: start: 20110311, end: 20110526
  8. XELODA [Suspect]
     Dosage: TOTAL OF 3 CYCLES
     Route: 048
     Dates: end: 20110512
  9. OLMESARTAN MEDOXOMIL [Concomitant]
     Indication: HYPERTENSION
     Route: 048
     Dates: start: 20110311, end: 20110526
  10. SOLDEM 1 [Concomitant]
     Dates: start: 20110514, end: 20110518
  11. XELODA [Suspect]
     Dosage: 1ST CYCLE
     Route: 048
     Dates: start: 20110318, end: 20110331
  12. OXALIPLATIN [Suspect]
     Route: 041
     Dates: start: 20110408, end: 20110408
  13. REMINARON [Concomitant]
     Route: 041
     Dates: start: 20110317, end: 20110418
  14. MAGLAX [Concomitant]
     Indication: CONSTIPATION
     Route: 048
     Dates: start: 20110421, end: 20110526
  15. GLUCOSE AND CALCIUM GLUCONATE AND POTASSIUM ACETATE AND POTASSIUM PHOS [Concomitant]
     Route: 042
     Dates: start: 20110517, end: 20110517
  16. OXALIPLATIN [Suspect]
     Dosage: DOSE: 160 MG/KG, 104.6 MG/M2
     Route: 041
     Dates: start: 20110318, end: 20110318
  17. XELODA [Suspect]
     Indication: RECTAL CANCER
     Dosage: THE PATIENT RECIEVED THREE CYCLES.
     Route: 048
     Dates: start: 20110512, end: 20110517
  18. DEXAMETHASONE SODIUM PHOSPHATE [Concomitant]
     Indication: PREMEDICATION
     Route: 041
     Dates: start: 20110318, end: 20110512
  19. ZOLPIDEM [Concomitant]
     Indication: INSOMNIA
     Route: 048
     Dates: start: 20110228, end: 20110526
  20. VALSARTAN [Concomitant]
     Indication: HYPERTENSION
     Route: 048
     Dates: start: 20110310, end: 20110526
  21. HUMULIN R [Concomitant]
     Dates: start: 20110517, end: 20110522
  22. OXALIPLATIN [Suspect]
     Indication: RECTAL CANCER
     Dosage: THE PATIENT RECIEVED 3 CYCLES AT 130.7 MG/M2
     Route: 041
     Dates: start: 20110512, end: 20110512
  23. RABEPRAZOLE SODIUM [Concomitant]
     Indication: GASTRIC ULCER
     Route: 048
     Dates: start: 20110302, end: 20110616
  24. AMLODIPINE BESYLATE [Concomitant]
     Indication: HYPERTENSION
     Route: 048
     Dates: start: 20110310, end: 20110526

REACTIONS (4)
  - TUMOUR LYSIS SYNDROME [None]
  - RENAL FAILURE ACUTE [None]
  - HAEMOGLOBIN DECREASED [None]
  - PERFORMANCE STATUS DECREASED [None]
